FAERS Safety Report 9064725 (Version 1)
Quarter: 2013Q1

REPORT INFORMATION
  Report Type: Report from Study
  Country: FR (occurrence: FR)
  Receive Date: 20130213
  Receipt Date: 20130213
  Transmission Date: 20140127
  Serious: Yes (Death, Other)
  Sender: FDA-Public Use
  Company Number: FR-ROCHE-769448

PATIENT
  Age: 73 None
  Sex: Male
  Weight: 95 kg

DRUGS (6)
  1. RITUXIMAB [Suspect]
     Indication: B-CELL LYMPHOMA
     Route: 042
     Dates: start: 20050203, end: 20080528
  2. DOXORUBICINE [Suspect]
     Indication: B-CELL LYMPHOMA
     Route: 042
     Dates: start: 20050204, end: 20050520
  3. CYCLOPHOSPHAMIDE [Suspect]
     Indication: B-CELL LYMPHOMA
     Route: 042
     Dates: start: 20050204, end: 20050520
  4. VINCRISTINE [Suspect]
     Indication: B-CELL LYMPHOMA
     Route: 042
     Dates: start: 20050204, end: 20050520
  5. FLUDARABINE [Suspect]
     Indication: B-CELL LYMPHOMA
     Route: 048
     Dates: start: 20080807, end: 20090105
  6. PREDNISONE [Suspect]
     Indication: B-CELL LYMPHOMA
     Route: 048
     Dates: start: 20050204, end: 20050525

REACTIONS (1)
  - Myelodysplastic syndrome [Fatal]
